FAERS Safety Report 20009929 (Version 3)
Quarter: 2021Q4

REPORT INFORMATION
  Report Type: Spontaneous
  Country: JP (occurrence: JP)
  Receive Date: 20211028
  Receipt Date: 20211213
  Transmission Date: 20220303
  Serious: Yes (Hospitalization, Other)
  Sender: FDA-Public Use
  Company Number: JP-BRISTOL-MYERS SQUIBB COMPANY-BMS-2021-110308

PATIENT
  Age: 53 Year
  Sex: Male
  Weight: 60.3 kg

DRUGS (9)
  1. OPDIVO [Suspect]
     Active Substance: NIVOLUMAB
     Indication: Malignant melanoma
     Dosage: 80 MILLIGRAM
     Route: 041
     Dates: start: 20210629, end: 20210824
  2. YERVOY [Suspect]
     Active Substance: IPILIMUMAB
     Indication: Malignant melanoma
     Dosage: 221.7 MILLIGRAM, ONE TIME DOSE
     Route: 041
     Dates: start: 20210629, end: 20210629
  3. YERVOY [Suspect]
     Active Substance: IPILIMUMAB
     Dosage: 190.5 MILLIGRAM, ONE TIME DOSE
     Route: 041
     Dates: start: 20210824, end: 20210824
  4. DIETARY SUPPLEMENT\PROBIOTICS [Concomitant]
     Active Substance: DIETARY SUPPLEMENT\PROBIOTICS
     Indication: Product used for unknown indication
     Dosage: UNK
     Route: 048
     Dates: end: 20210818
  5. CHONDROITIN SULFATE (BOVINE) [Concomitant]
     Active Substance: CHONDROITIN SULFATE (BOVINE)
     Indication: Product used for unknown indication
     Dosage: UNK
     Dates: end: 20210818
  6. GLYCOSAMINOGLYCANS [Concomitant]
     Active Substance: GLYCOSAMINOGLYCANS
     Indication: Product used for unknown indication
     Dosage: UNK
     Route: 062
     Dates: end: 20210818
  7. FELBINAC [Concomitant]
     Active Substance: FELBINAC
     Indication: Product used for unknown indication
     Dosage: UNK
     Route: 062
     Dates: end: 20210818
  8. RABEPRAZOLE SODIUM [Concomitant]
     Active Substance: RABEPRAZOLE SODIUM
     Indication: Product used for unknown indication
     Dosage: UNK
     Route: 048
     Dates: end: 20210818
  9. FELBINAC [Concomitant]
     Active Substance: FELBINAC
     Indication: Product used for unknown indication
     Dosage: UNK
     Dates: end: 20210818

REACTIONS (12)
  - Renal tubular necrosis [Recovered/Resolved]
  - Acute kidney injury [Recovered/Resolved]
  - Tubulointerstitial nephritis [Recovered/Resolved]
  - Immune-mediated enterocolitis [Recovered/Resolved]
  - Adrenal insufficiency [Unknown]
  - Gastrointestinal wall thickening [Unknown]
  - Eating disorder [Unknown]
  - Diarrhoea [Unknown]
  - Decreased appetite [Unknown]
  - Malaise [Unknown]
  - Cortisol decreased [Unknown]
  - Blood corticotrophin decreased [Unknown]

NARRATIVE: CASE EVENT DATE: 20210703
